FAERS Safety Report 5296309-2 (Version None)
Quarter: 2007Q2

REPORT INFORMATION
  Report Type: 
  Country: None (occurrence: None)
  Receive Date: 20070413
  Receipt Date: 20070330
  Transmission Date: 20071010
  Serious: Yes (Disabling)
  Sender: FDA-Public Use
  Company Number: GB-JNJFOC-20070402635

PATIENT
  Age: 38 Year
  Sex: Male

DRUGS (3)
  1. TRAMADOL HCL [Suspect]
     Indication: BACK PAIN
     Route: 048
  2. IBUPROFEN [Concomitant]
     Indication: BACK PAIN
     Route: 048
  3. ROBAXIN [Concomitant]
     Indication: BACK PAIN
     Route: 048

REACTIONS (4)
  - OEDEMA PERIPHERAL [None]
  - POLLAKIURIA [None]
  - RASH MACULAR [None]
  - TERMINAL DRIBBLING [None]
